FAERS Safety Report 11119920 (Version 2)
Quarter: 2016Q1

REPORT INFORMATION
  Report Type: Report from Study
  Country: CA (occurrence: CA)
  Receive Date: 20150518
  Receipt Date: 20160309
  Transmission Date: 20160525
  Serious: Yes (Hospitalization)
  Sender: FDA-Public Use
  Company Number: CA-ABBVIE-15K-028-1389991-00

PATIENT
  Age: 42 Year
  Sex: Male
  Weight: 86.26 kg

DRUGS (7)
  1. IMURAN [Concomitant]
     Active Substance: AZATHIOPRINE
     Indication: CROHN^S DISEASE
     Route: 048
     Dates: start: 201005
  2. PREDNISONE. [Concomitant]
     Active Substance: PREDNISONE
     Indication: ANTIINFLAMMATORY THERAPY
     Dosage: 40 MG THEN DECREASED BY 5 MG EVERY WEEK
     Route: 048
     Dates: start: 201505, end: 201507
  3. HUMIRA [Suspect]
     Active Substance: ADALIMUMAB
     Route: 058
     Dates: start: 20150511
  4. IMURAN [Concomitant]
     Active Substance: AZATHIOPRINE
     Indication: IMMUNOSUPPRESSION
  5. ENTOCORT [Concomitant]
     Active Substance: BUDESONIDE
     Indication: ANTIINFLAMMATORY THERAPY
     Route: 048
     Dates: start: 2009
  6. HUMIRA [Suspect]
     Active Substance: ADALIMUMAB
     Indication: CROHN^S DISEASE
     Route: 058
     Dates: start: 20130208, end: 201505
  7. BRICANYL [Concomitant]
     Active Substance: TERBUTALINE SULFATE
     Indication: ASTHMA

REACTIONS (5)
  - Gastrointestinal inflammation [Recovering/Resolving]
  - Gastrointestinal wall thickening [Unknown]
  - Intestinal obstruction [Recovered/Resolved]
  - Crohn^s disease [Unknown]
  - Nausea [Unknown]

NARRATIVE: CASE EVENT DATE: 20150506
